FAERS Safety Report 17888644 (Version 1)
Quarter: 2020Q2

REPORT INFORMATION
  Report Type: Report from Study
  Country: CO (occurrence: CO)
  Receive Date: 20200612
  Receipt Date: 20200612
  Transmission Date: 20200714
  Serious: Yes (Death)
  Sender: FDA-Public Use
  Company Number: CO-ACTELION-A-CH2020-206128

PATIENT
  Age: 66 Year
  Sex: Female
  Weight: 67 kg

DRUGS (1)
  1. OPSUMIT [Suspect]
     Active Substance: MACITENTAN
     Indication: PULMONARY ARTERIAL HYPERTENSION
     Dosage: 10 MG, QD
     Route: 048
     Dates: start: 20200403

REACTIONS (1)
  - Death [Fatal]

NARRATIVE: CASE EVENT DATE: 202005
